FAERS Safety Report 7361850-5 (Version None)
Quarter: 2011Q1

REPORT INFORMATION
  Report Type: 
  Country: None (occurrence: None)
  Receive Date: 20110318
  Receipt Date: 20110315
  Transmission Date: 20110831
  Serious: Yes (Hospitalization)
  Sender: FDA-Public Use
  Company Number: CH-ROCHE-765633

PATIENT
  Age: 64 Year
  Sex: Female

DRUGS (10)
  1. VITAMIN A [Concomitant]
     Route: 047
  2. FOSAMAX [Suspect]
     Indication: OSTEOPOROSIS
     Dosage: STRENGTH REPORTED AS UNSPEC. DURATION OF USE:6 YEARS
     Route: 048
     Dates: start: 19990101, end: 20050101
  3. NEXIUM [Suspect]
     Dosage: STRENGTH:UNSPEC, DURATION:LONG TERM (7 YEARS).INDICATION:CHRONIC GASTRITIS,UNSPECIFIED,HIATAL HERNIA
     Route: 048
  4. BETASERC [Concomitant]
     Indication: MENIERE'S DISEASE
     Dosage: DURATION OF USE:LONG TERM, STRENGTH:UNSPEC
     Route: 048
  5. BONIVA [Suspect]
     Indication: OSTEOPOROSIS
     Dosage: STRENGTH: UNSPEC.DURATION OF USE: 5 YEAR.
     Route: 048
     Dates: start: 20050101, end: 20110303
  6. ACULAR [Concomitant]
     Route: 047
  7. LACRYCON [Concomitant]
     Route: 047
  8. PROTAGENT [Concomitant]
     Route: 047
  9. CALCIMAGON-D3 [Concomitant]
     Dosage: STRENGTH:UNSPEC, DURATION:LONG TERM
     Route: 048
  10. ANAFRANIL [Concomitant]
     Indication: DEPRESSION
     Dosage: STRENGTH:UNSPEC, DURATION OF USE:LONG TERM
     Route: 048

REACTIONS (1)
  - LOWER LIMB FRACTURE [None]
